FAERS Safety Report 6428772-5 (Version None)
Quarter: 2009Q4

REPORT INFORMATION
  Report Type: 
  Country: None (occurrence: None)
  Receive Date: 20091105
  Receipt Date: 20091027
  Transmission Date: 20100525
  Serious: Yes (Hospitalization)
  Sender: FDA-Public Use
  Company Number: US-CELGENEUS-163-20785-09102301

PATIENT
  Sex: Female

DRUGS (1)
  1. THALOMID [Suspect]
     Indication: PLASMACYTOMA
     Route: 048
     Dates: start: 20090930

REACTIONS (2)
  - KIDNEY INFECTION [None]
  - LUNG INFECTION [None]
